FAERS Safety Report 11636068 (Version 1)
Quarter: 2015Q4

REPORT INFORMATION
  Report Type: Report from Study
  Country: PL (occurrence: PL)
  Receive Date: 20151016
  Receipt Date: 20151016
  Transmission Date: 20160304
  Serious: Yes (Death)
  Sender: FDA-Public Use
  Company Number: PL-ACCORD-034401

PATIENT

DRUGS (2)
  1. MITOMYCIN. [Suspect]
     Active Substance: MITOMYCIN
     Indication: COLORECTAL CANCER METASTATIC
     Dosage: MITOMYCIN C ON DAY 1 FOLLOWED BY 7-DAY TREATMENT FREE INTERVAL?EACH CYCLE REPEATED EVERY 3 WEEK
     Route: 042
  2. CAPECITABINE. [Suspect]
     Active Substance: CAPECITABINE
     Indication: COLORECTAL CANCER METASTATIC
     Dosage: CAPECITABINE ON DAY 1-14 FOLLOWED BY 7-DAY TREATMENT FREE INTERVAL?EACH CYCLE REPEATED EVERY 3 WEEK
     Route: 048

REACTIONS (1)
  - Myocardial infarction [Fatal]
